FAERS Safety Report 4924949-6 (Version None)
Quarter: 2006Q1

REPORT INFORMATION
  Report Type: 
  Country: None (occurrence: None)
  Receive Date: 20060127
  Receipt Date: 20051229
  Transmission Date: 20060701
  Serious: Yes (Other)
  Sender: FDA-Public Use
  Company Number: 2006001239

PATIENT
  Sex: Female

DRUGS (1)
  1. LYRICA [Suspect]
     Indication: NEUROPATHY
     Dosage: 225 MG (75 MG, 3 IN 1 D)

REACTIONS (4)
  - COORDINATION ABNORMAL [None]
  - DIZZINESS [None]
  - FEELING DRUNK [None]
  - SOMNOLENCE [None]
